FAERS Safety Report 19918581 (Version 1)
Quarter: 2021Q4

REPORT INFORMATION
  Report Type: Spontaneous
  Country: US (occurrence: US)
  Receive Date: 20211005
  Receipt Date: 20211005
  Transmission Date: 20220303
  Serious: Yes (Hospitalization, Other)
  Sender: FDA-Public Use
  Company Number: US-AMGEN-USASP2021152199

PATIENT
  Sex: Male

DRUGS (1)
  1. BLINCYTO [Suspect]
     Active Substance: BLINATUMOMAB
     Indication: Product used for unknown indication
     Dosage: 5 MICROGRAM/SQ. METER
     Route: 065

REACTIONS (1)
  - Cytokine release syndrome [Unknown]

NARRATIVE: CASE EVENT DATE: 20210929
